FAERS Safety Report 21258355 (Version 1)
Quarter: 2022Q3

REPORT INFORMATION
  Report Type: Spontaneous
  Country: US (occurrence: US)
  Receive Date: 20220826
  Receipt Date: 20220826
  Transmission Date: 20221027
  Serious: No
  Sender: FDA-Public Use
  Company Number: US-TARO PHARMACEUTICALS USA INC.-2020TAR01408

PATIENT

DRUGS (1)
  1. TERBINAFINE [Suspect]
     Active Substance: TERBINAFINE
     Indication: Product used for unknown indication
     Dosage: 1 OZ
     Route: 065

REACTIONS (3)
  - Erythema [Unknown]
  - Rash macular [Unknown]
  - Swelling [Unknown]

NARRATIVE: CASE EVENT DATE: 20200819
